FAERS Safety Report 24684362 (Version 6)
Quarter: 2025Q1

REPORT INFORMATION
  Report Type: Report from Study
  Country: US (occurrence: US)
  Receive Date: 20241202
  Receipt Date: 20250226
  Transmission Date: 20250409
  Serious: Yes (Hospitalization, Other)
  Sender: ACADIA PHARMACEUTICALS
  Company Number: US-ACADIA PHARMACEUTICALS INC.-ACA-2024-PIM-007633

PATIENT

DRUGS (2)
  1. NUPLAZID [Suspect]
     Active Substance: PIMAVANSERIN TARTRATE
     Indication: Parkinson^s disease psychosis
     Dosage: 34 MILLIGRAM, QD
     Route: 048
     Dates: start: 202411, end: 20241119
  2. NUPLAZID [Suspect]
     Active Substance: PIMAVANSERIN TARTRATE
     Dosage: 34 MILLIGRAM, QD
     Route: 048

REACTIONS (8)
  - Pneumonia [Recovered/Resolved]
  - Suicidal ideation [Not Recovered/Not Resolved]
  - Condition aggravated [Recovered/Resolved]
  - Sudden onset of sleep [Not Recovered/Not Resolved]
  - Hallucination [Not Recovered/Not Resolved]
  - Screaming [Not Recovered/Not Resolved]
  - Drug ineffective [Unknown]
  - Fall [Unknown]
